FAERS Safety Report 12337009 (Version 1)
Quarter: 2016Q2

REPORT INFORMATION
  Report Type: Spontaneous
  Country: US (occurrence: US)
  Receive Date: 20160505
  Receipt Date: 20160505
  Transmission Date: 20160815
  Serious: Yes (Other)
  Sender: FDA-Public Use
  Company Number: US-WARNER CHILCOTT, LLC-1051480

PATIENT
  Age: 93 Year
  Sex: Female

DRUGS (2)
  1. ESTRACE [Suspect]
     Active Substance: ESTRADIOL
     Route: 067
  2. ALL OTHER THERAPEUTIC PRODUCTS [Concomitant]
     Active Substance: UNSPECIFIED INGREDIENT

REACTIONS (4)
  - Uterine neoplasm [Not Recovered/Not Resolved]
  - Gastrointestinal pain [Unknown]
  - Hydrometra [Not Recovered/Not Resolved]
  - Gastrointestinal disorder [Unknown]
